FAERS Safety Report 23108594 (Version 1)
Quarter: 2023Q4

REPORT INFORMATION
  Report Type: Report from Study
  Country: ZA (occurrence: ZA)
  Receive Date: 20231026
  Receipt Date: 20231026
  Transmission Date: 20240110
  Serious: Yes (Other)
  Sender: FDA-Public Use
  Company Number: ZA-002147023-NVSC2023ZA165217

PATIENT
  Age: 53 Year
  Sex: Female

DRUGS (1)
  1. RIBOCICLIB [Suspect]
     Active Substance: RIBOCICLIB
     Indication: Breast cancer metastatic
     Dosage: 600 MG, QD (3 TABLETS EVERYDAY) (7 DAYS BREAK)
     Route: 048
     Dates: start: 20220606

REACTIONS (4)
  - Pulmonary oedema [Unknown]
  - Dizziness [Unknown]
  - Haemoglobin decreased [Unknown]
  - Vomiting [Not Recovered/Not Resolved]
